FAERS Safety Report 25339572 (Version 1)
Quarter: 2025Q2

REPORT INFORMATION
  Report Type: Spontaneous
  Country: US (occurrence: US)
  Receive Date: 20250521
  Receipt Date: 20250521
  Transmission Date: 20250716
  Serious: No
  Sender: ACCORD
  Company Number: US-Accord-481666

PATIENT
  Age: 40 Year
  Sex: Female

DRUGS (3)
  1. TRASTUZUMAB [Suspect]
     Active Substance: TRASTUZUMAB
     Indication: HER2 positive breast cancer
     Dates: start: 20250414
  2. PERJETA [Concomitant]
     Active Substance: PERTUZUMAB
  3. FILGRASTIM [Concomitant]
     Active Substance: FILGRASTIM

REACTIONS (9)
  - Constipation [Unknown]
  - Paraesthesia [Unknown]
  - Diarrhoea [Unknown]
  - Fatigue [Unknown]
  - Alopecia [Unknown]
  - Headache [Unknown]
  - Nausea [Unknown]
  - Myalgia [Unknown]
  - Asthenia [Unknown]

NARRATIVE: CASE EVENT DATE: 20250416
